FAERS Safety Report 5224443-1 (Version None)
Quarter: 2007Q1

REPORT INFORMATION
  Report Type: 
  Country: None (occurrence: None)
  Receive Date: 20070130
  Receipt Date: 20070119
  Transmission Date: 20070707
  Serious: Yes (Hospitalization, Other)
  Sender: FDA-Public Use
  Company Number: US-PFIZER INC-2006149525

PATIENT
  Sex: Female
  Weight: 74.4 kg

DRUGS (5)
  1. CHANTIX [Suspect]
     Indication: SMOKING CESSATION THERAPY
     Dosage: FREQ:DAILY
     Route: 048
     Dates: start: 20060712, end: 20061120
  2. CHANTIX [Suspect]
     Indication: DRUG WITHDRAWAL SYNDROME
  3. EFFEXOR XR [Concomitant]
  4. LOTREL [Concomitant]
     Dates: start: 20020101
  5. DEPO-ESTRADIOL [Concomitant]

REACTIONS (6)
  - COLITIS ISCHAEMIC [None]
  - ENTEROCOLITIS INFECTIOUS [None]
  - ILEUS [None]
  - NAUSEA [None]
  - PAIN [None]
  - PSEUDOMEMBRANOUS COLITIS [None]
